FAERS Safety Report 7494350-2 (Version None)
Quarter: 2011Q2

REPORT INFORMATION
  Report Type: 
  Country: None (occurrence: None)
  Receive Date: 20110520
  Receipt Date: 20110516
  Transmission Date: 20111010
  Serious: Yes (Other)
  Sender: FDA-Public Use
  Company Number: GB-MERCK-1105GBR00021

PATIENT
  Age: 78 Year
  Sex: Female

DRUGS (5)
  1. ISOSORBIDE DINITRATE [Suspect]
     Route: 065
  2. OMEPRAZOLE [Suspect]
     Indication: TEMPORAL ARTERITIS
     Route: 065
  3. ATENOLOL [Suspect]
     Route: 065
  4. ZOCOR [Suspect]
     Route: 048
  5. PREDNISOLONE [Suspect]
     Indication: TEMPORAL ARTERITIS
     Route: 065

REACTIONS (1)
  - CUTANEOUS LUPUS ERYTHEMATOSUS [None]
